FAERS Safety Report 6244685-6 (Version None)
Quarter: 2009Q2

REPORT INFORMATION
  Report Type: 
  Country: None (occurrence: None)
  Receive Date: 20090623
  Receipt Date: 20090610
  Transmission Date: 20091009
  Serious: No
  Sender: FDA-Public Use
  Company Number: 2009-198468-NL

PATIENT
  Age: 41 Year
  Sex: Female

DRUGS (2)
  1. ETONOGESTREL [Suspect]
     Indication: CONTRACEPTION
     Dosage: DF
     Dates: end: 20060201
  2. WARFARIN [Concomitant]

REACTIONS (1)
  - OSTEOPOROSIS [None]
